FAERS Safety Report 4904998-4 (Version None)
Quarter: 2006Q1

REPORT INFORMATION
  Report Type: 
  Country: None (occurrence: None)
  Receive Date: 20060208
  Receipt Date: 20051102
  Transmission Date: 20060701
  Serious: No
  Sender: FDA-Public Use
  Company Number: US-GLAXOSMITHKLINE-A0580669A

PATIENT
  Age: 68 Year
  Sex: Female

DRUGS (4)
  1. PAXIL [Suspect]
     Indication: DEPRESSION
     Dosage: 50MG THREE TIMES PER DAY
     Route: 048
  2. HYZAAR [Concomitant]
  3. ZETIA [Concomitant]
  4. XANAX [Concomitant]

REACTIONS (2)
  - CRYING [None]
  - DEPRESSIVE SYMPTOM [None]
